FAERS Safety Report 19920650 (Version 1)
Quarter: 2021Q4

REPORT INFORMATION
  Report Type: Report from Study
  Country: BR (occurrence: BR)
  Receive Date: 20211005
  Receipt Date: 20211005
  Transmission Date: 20220303
  Serious: Yes (Hospitalization, Other)
  Sender: FDA-Public Use
  Company Number: BR-NOVARTISPH-PHHY2018BR196278

PATIENT
  Age: 39 Year
  Sex: Female
  Weight: 71 kg

DRUGS (1)
  1. COSENTYX [Suspect]
     Active Substance: SECUKINUMAB
     Indication: Psoriatic arthropathy
     Dosage: 300 MG, QMO
     Route: 058
     Dates: start: 20181016

REACTIONS (7)
  - Incisional hernia [Not Recovered/Not Resolved]
  - Immunosuppression [Recovering/Resolving]
  - Secretion discharge [Unknown]
  - Arthralgia [Not Recovered/Not Resolved]
  - Laryngitis [Recovering/Resolving]
  - Pharyngitis [Recovering/Resolving]
  - Aphonia [Recovering/Resolving]

NARRATIVE: CASE EVENT DATE: 20191201
